FAERS Safety Report 24164439 (Version 2)
Quarter: 2024Q3

REPORT INFORMATION
  Report Type: Report from Study
  Country: US (occurrence: US)
  Receive Date: 20240801
  Receipt Date: 20240812
  Transmission Date: 20241017
  Serious: Yes (Hospitalization, Other)
  Sender: BRISTOL MYERS SQUIBB
  Company Number: US-BRISTOL-MYERS SQUIBB COMPANY-2024-116481

PATIENT
  Age: 75 Year
  Sex: Female

DRUGS (1)
  1. KRAZATI [Suspect]
     Active Substance: ADAGRASIB
     Indication: Lung carcinoma cell type unspecified stage 0
     Dosage: BID
     Route: 048
     Dates: start: 20240709, end: 20240720

REACTIONS (8)
  - Nausea [Unknown]
  - Vomiting [Unknown]
  - Dehydration [Unknown]
  - Decreased appetite [Unknown]
  - Confusional state [Not Recovered/Not Resolved]
  - Urine odour abnormal [Unknown]
  - Renal impairment [Unknown]
  - Gait inability [Not Recovered/Not Resolved]

NARRATIVE: CASE EVENT DATE: 20240720
